FAERS Safety Report 21878907 (Version 1)
Quarter: 2023Q1

REPORT INFORMATION
  Report Type: Spontaneous
  Country: TR (occurrence: TR)
  Receive Date: 20230118
  Receipt Date: 20230118
  Transmission Date: 20230417
  Serious: Yes (Hospitalization, Other)
  Sender: FDA-Public Use
  Company Number: TR-LGC-011531

PATIENT
  Sex: Male

DRUGS (1)
  1. FACTIVE [Suspect]
     Active Substance: GEMIFLOXACIN MESYLATE
     Indication: Influenza
     Route: 048

REACTIONS (5)
  - Rash macular [Unknown]
  - Blood pressure decreased [Unknown]
  - Syncope [Recovered/Resolved]
  - Off label use [Unknown]
  - Blood glucose increased [Unknown]
